FAERS Safety Report 4279253-9 (Version None)
Quarter: 2004Q1

REPORT INFORMATION
  Report Type: 
  Country: None (occurrence: None)
  Receive Date: 20040122
  Receipt Date: 20040115
  Transmission Date: 20041129
  Serious: Yes (Hospitalization)
  Sender: FDA-Public Use
  Company Number: FR-JNJFOC-20040102868

PATIENT
  Age: 71 Year
  Sex: Female

DRUGS (9)
  1. DURAGESIC [Suspect]
     Dosage: TRANSDERMAL
     Route: 062
  2. MORPHINE SULFATE [Suspect]
     Dosage: ORAL
     Route: 048
  3. SOPROOL (BISOPROLOL FUMARATE [Concomitant]
  4. LEVOTHYROXINE SODIUM [Concomitant]
  5. MOPRAL IOMEPRAZOLE) [Concomitant]
  6. MIDODRINE HCL [Concomitant]
  7. LASIX [Concomitant]
  8. LEXOMIL (BROMAZEPAM) [Concomitant]
  9. THERALANE (ALIMEMAZINE TARTRATE) [Concomitant]

REACTIONS (7)
  - BRADYARRHYTHMIA [None]
  - CONFUSIONAL STATE [None]
  - DRUG INTERACTION [None]
  - FALL [None]
  - OSTEOPOROSIS [None]
  - SPINAL COMPRESSION FRACTURE [None]
  - SPINAL DISORDER [None]
